FAERS Safety Report 14871379 (Version 4)
Quarter: 2019Q1

REPORT INFORMATION
  Report Type: Spontaneous
  Country: US (occurrence: US)
  Receive Date: 20180509
  Receipt Date: 20190130
  Transmission Date: 20190417
  Serious: Yes (Hospitalization, Other)
  Sender: FDA-Public Use
  Company Number: US-PFIZER INC-2018003606

PATIENT
  Age: 73 Year
  Sex: Female
  Weight: 86 kg

DRUGS (5)
  1. ATENOLOL. [Concomitant]
     Active Substance: ATENOLOL
     Dosage: 50 MG, DAILY (1/2 IN THE MORNING AND 1/2 AT NIGHT / TAKING FOR ABOUT 20 YEARS)
  2. METFORMIN [Concomitant]
     Active Substance: METFORMIN HYDROCHLORIDE
     Indication: DIABETES MELLITUS
     Dosage: 500 MG, 2X/DAY
  3. XELJANZ XR [Suspect]
     Active Substance: TOFACITINIB CITRATE
     Indication: RHEUMATOID ARTHRITIS
     Dosage: 11 MG, 1X/DAY
     Route: 048
     Dates: start: 20160117, end: 201805
  4. ELIQUIS [Concomitant]
     Active Substance: APIXABAN
     Indication: ANTICOAGULANT THERAPY
     Dosage: UNK, 2X/DAY (TAKING FOR ABOUT 2 YEARS)
  5. SPIRONOLACTONE. [Concomitant]
     Active Substance: SPIRONOLACTONE
     Dosage: 25 MG, ALTERNATE DAY

REACTIONS (7)
  - Pharyngeal abscess [Unknown]
  - Dizziness [Unknown]
  - Facial paralysis [Unknown]
  - Pneumonia [Unknown]
  - Malaise [Unknown]
  - Pneumonia [Unknown]
  - B-cell lymphoma [Recovered/Resolved]

NARRATIVE: CASE EVENT DATE: 201601
